FAERS Safety Report 8774052 (Version 1)
Quarter: 2012Q4

REPORT INFORMATION
  Report Type: 
  Country: GB (occurrence: GB)
  Receive Date: 20120907
  Receipt Date: 20120907
  Transmission Date: 20130627
  Serious: Yes (Other)
  Sender: FDA-Public Use
  Company Number: GB-ACCORD-014600

PATIENT
  Sex: Female

DRUGS (2)
  1. LEVETIRACETAM [Suspect]
     Indication: SEIZURES
     Dates: start: 201204
  2. LEVETIRACETAM [Suspect]
     Indication: SEIZURES
     Dates: start: 201204

REACTIONS (2)
  - Convulsion [Unknown]
  - Product substitution issue [Unknown]
